FAERS Safety Report 4552086-1 (Version None)
Quarter: 2005Q1

REPORT INFORMATION
  Report Type: 
  Country: None (occurrence: None)
  Receive Date: 20050112
  Receipt Date: 20041222
  Transmission Date: 20050727
  Serious: Yes (Death, Hospitalization, Other)
  Sender: FDA-Public Use
  Company Number: US_0501109844

PATIENT
  Age: 57 Year
  Sex: Female

DRUGS (1)
  1. EVISTA [Suspect]
     Dosage: 60 MG DAY
     Dates: start: 19990628, end: 20011201

REACTIONS (11)
  - ANAEMIA POSTOPERATIVE [None]
  - ENDOMETRIAL CANCER METASTATIC [None]
  - ENDOMETRIAL SARCOMA [None]
  - GENERAL PHYSICAL HEALTH DETERIORATION [None]
  - MALIGNANT NEOPLASM PROGRESSION [None]
  - METASTASES TO LIVER [None]
  - METASTASES TO PERITONEUM [None]
  - METASTASIS [None]
  - POST PROCEDURAL HAEMORRHAGE [None]
  - UTERINE CANCER [None]
  - UTERINE LEIOMYOMA [None]
